FAERS Safety Report 18467829 (Version 1)
Quarter: 2020Q4

REPORT INFORMATION
  Report Type: Spontaneous
  Country: US (occurrence: US)
  Receive Date: 20201105
  Receipt Date: 20201105
  Transmission Date: 20210114
  Serious: Yes (Hospitalization)
  Sender: FDA-Public Use
  Company Number: US-009507513-2011USA001081

PATIENT
  Age: 19207 Day
  Sex: Male
  Weight: 122.5 kg

DRUGS (7)
  1. BYDUREON [Suspect]
     Active Substance: EXENATIDE
     Indication: TYPE 2 DIABETES MELLITUS
     Dosage: 2 MILLIGRAM, QW
     Route: 058
     Dates: start: 20180811
  2. BYDUREON [Suspect]
     Active Substance: EXENATIDE
     Indication: WEIGHT DECREASED
  3. ASPIRIN. [Concomitant]
     Active Substance: ASPIRIN
     Indication: ANTICOAGULANT THERAPY
     Dosage: 81 MILLIGRAM, QD
     Route: 048
  4. PRINIVIL [Suspect]
     Active Substance: LISINOPRIL
     Indication: BLOOD PRESSURE ABNORMAL
     Dosage: 20 MILLIGRAM, QD
     Route: 048
  5. ZINC ACETATE [Concomitant]
     Active Substance: ZINC ACETATE
     Indication: VITAMIN SUPPLEMENTATION
     Dosage: 50 MILLIGRAM, QD
     Route: 048
     Dates: start: 201708
  6. PRINIVIL [Suspect]
     Active Substance: LISINOPRIL
     Indication: BLOOD PRESSURE ABNORMAL
  7. ASCORBIC ACID. [Concomitant]
     Active Substance: ASCORBIC ACID
     Indication: VITAMIN SUPPLEMENTATION
     Dosage: 500 MILLIGRAM, QD
     Route: 048

REACTIONS (9)
  - Intestinal haemorrhage [Recovered/Resolved]
  - Injection site haemorrhage [Recovered/Resolved]
  - Diverticulum [Unknown]
  - Blood pressure abnormal [Unknown]
  - Product use in unapproved indication [Unknown]
  - Off label use [Unknown]
  - Thyroid disorder [Unknown]
  - Product use issue [Unknown]
  - Bladder disorder [Unknown]

NARRATIVE: CASE EVENT DATE: 201709
